FAERS Safety Report 19032924 (Version 1)
Quarter: 2021Q1

REPORT INFORMATION
  Report Type: Spontaneous
  Country: US (occurrence: US)
  Receive Date: 20210319
  Receipt Date: 20210319
  Transmission Date: 20210420
  Serious: No
  Sender: FDA-Public Use
  Company Number: US-THERAPEUTICSMD-2021TMD00879

PATIENT
  Sex: Female
  Weight: 81.63 kg

DRUGS (6)
  1. CBD (CANNABIDIOL) [Concomitant]
     Dosage: ^A LITTLE^
  2. IMVEXXY [Suspect]
     Active Substance: ESTRADIOL
     Indication: HORMONE REPLACEMENT THERAPY
     Dosage: 10 ?G, 3X/WEEK (3 PLUS TIMES A WEEK)
     Route: 067
     Dates: start: 2019
  3. IMVEXXY [Suspect]
     Active Substance: ESTRADIOL
     Dosage: 10 ?G, 1X/WEEK (AT LEAST)
     Route: 067
  4. UNSPECIFIED SEVERAL VITAMINS [Concomitant]
  5. OCUVITE (LUTEIN AND ANTIOXIDANTS) [Concomitant]
  6. UNSPECIFIED SUPPLEMENTS [Concomitant]

REACTIONS (4)
  - Off label use [Not Recovered/Not Resolved]
  - Malabsorption from administration site [Recovering/Resolving]
  - Product residue present [Recovering/Resolving]
  - Intentional product use issue [Unknown]

NARRATIVE: CASE EVENT DATE: 2019
